FAERS Safety Report 20535925 (Version 1)
Quarter: 2022Q1

REPORT INFORMATION
  Report Type: Spontaneous
  Country: US (occurrence: None)
  Receive Date: 20220302
  Receipt Date: 20220302
  Transmission Date: 20220423
  Serious: No
  Sender: FDA-Public Use
  Company Number: US-ROCHE-2902321

PATIENT
  Age: 12 Year
  Sex: Female

DRUGS (4)
  1. NUTROPIN [Suspect]
     Active Substance: SOMATROPIN
     Indication: Growth hormone deficiency
     Dosage: NUSPIN 5 PEN
     Route: 058
     Dates: start: 20210723, end: 20210803
  2. NUTROPIN [Suspect]
     Active Substance: SOMATROPIN
  3. NUTROPIN [Suspect]
     Active Substance: SOMATROPIN
     Route: 058
     Dates: start: 20210806
  4. NUTROPIN [Suspect]
     Active Substance: SOMATROPIN

REACTIONS (3)
  - Device leakage [Unknown]
  - Dehydration [Recovered/Resolved]
  - Product dose omission issue [Unknown]

NARRATIVE: CASE EVENT DATE: 20210723
